FAERS Safety Report 5600830-4 (Version None)
Quarter: 2008Q1

REPORT INFORMATION
  Report Type: 
  Country: None (occurrence: None)
  Receive Date: 20080123
  Receipt Date: 20080111
  Transmission Date: 20080703
  Serious: Yes (Other)
  Sender: FDA-Public Use
  Company Number: US-PFIZER INC-2008006266

PATIENT
  Sex: Female

DRUGS (1)
  1. CHANTIX [Suspect]

REACTIONS (5)
  - ABNORMAL DREAMS [None]
  - DRUG ADMINISTRATION ERROR [None]
  - HYPERHIDROSIS [None]
  - NEOPLASM [None]
  - PAIN OF SKIN [None]
